FAERS Safety Report 5196010-X (Version None)
Quarter: 2007Q1

REPORT INFORMATION
  Report Type: 
  Country: None (occurrence: None)
  Receive Date: 20070102
  Receipt Date: 20061222
  Transmission Date: 20070707
  Serious: Yes (Other)
  Sender: FDA-Public Use
  Company Number: 2006UW28622

PATIENT
  Age: 61 Year
  Sex: Female
  Weight: 54.5 kg

DRUGS (17)
  1. SEROQUEL [Suspect]
     Indication: PSYCHOTIC DISORDER
     Dosage: 100MG QAM, 300MG QHS, 50MG PRN QHS
     Route: 048
     Dates: start: 20061102, end: 20061130
  2. SEROQUEL [Suspect]
     Route: 048
     Dates: start: 20061218
  3. ABILIFY [Concomitant]
     Route: 048
     Dates: start: 20061005, end: 20061102
  4. ATENOLOL [Concomitant]
     Route: 048
  5. BACLOFEN [Concomitant]
  6. BENAZEPRIL HCL [Concomitant]
  7. FUROSEMIDE [Concomitant]
  8. HYDROXYZINE PAMOATE [Concomitant]
  9. OMEPRAZOLE [Concomitant]
     Route: 048
  10. PRAZOSIN HCL [Concomitant]
  11. SPIRONOLACTONE [Concomitant]
  12. ASPIRIN [Concomitant]
  13. CLOZARIL [Concomitant]
  14. METHOTREXATE [Concomitant]
  15. REMERON [Concomitant]
  16. PREDNISONE [Concomitant]
  17. ZOLPIDEM TARTRATE [Concomitant]

REACTIONS (4)
  - CLAVICLE FRACTURE [None]
  - DIZZINESS [None]
  - FALL [None]
  - SOMNOLENCE [None]
